FAERS Safety Report 7962542-1 (Version None)
Quarter: 2011Q4

REPORT INFORMATION
  Report Type: 
  Country: None (occurrence: None)
  Receive Date: 20111207
  Receipt Date: 20111130
  Transmission Date: 20120403
  Serious: Yes (Hospitalization)
  Sender: FDA-Public Use
  Company Number: FR-GLAXOSMITHKLINE-B0766031A

PATIENT
  Sex: Female

DRUGS (1)
  1. ARIXTRA [Suspect]
     Indication: PULMONARY EMBOLISM
     Route: 058
     Dates: start: 20110801, end: 20111001

REACTIONS (2)
  - VAGINAL HAEMORRHAGE [None]
  - POST PROCEDURAL HAEMORRHAGE [None]
